FAERS Safety Report 13247072 (Version 6)
Quarter: 2019Q1

REPORT INFORMATION
  Report Type: Report from Study
  Country: JP (occurrence: JP)
  Receive Date: 20170217
  Receipt Date: 20190320
  Transmission Date: 20190417
  Serious: Yes (Other)
  Sender: FDA-Public Use
  Company Number: JP-BRISTOL-MYERS SQUIBB COMPANY-BMS-2017-013455

PATIENT
  Age: 78 Year
  Sex: Male
  Weight: 53 kg

DRUGS (11)
  1. ELOTUZUMAB. [Suspect]
     Active Substance: ELOTUZUMAB
     Indication: PRODUCT USED FOR UNKNOWN INDICATION
     Dosage: 10 MILLIGRAM/KILOGRAM, Q2WK
     Route: 041
     Dates: start: 20170328, end: 20180825
  2. DEXAMETHASONE. [Suspect]
     Active Substance: DEXAMETHASONE
     Indication: PLASMA CELL MYELOMA
     Dosage: 8 MILLIGRAM, QWK
     Route: 041
     Dates: start: 20170131, end: 20170321
  3. DEXAMETHASONE. [Suspect]
     Active Substance: DEXAMETHASONE
     Indication: PRODUCT USED FOR UNKNOWN INDICATION
     Dosage: 12 MILLIGRAM, Q4WK
     Route: 048
     Dates: start: 20180728, end: 20190216
  4. ELOTUZUMAB. [Suspect]
     Active Substance: ELOTUZUMAB
     Indication: PLASMA CELL MYELOMA
     Dosage: 10 MILLIGRAM/KILOGRAM, QWK
     Route: 041
     Dates: start: 20170131, end: 20170321
  5. DEXAMETHASONE. [Suspect]
     Active Substance: DEXAMETHASONE
     Indication: PLASMA CELL MYELOMA
     Dosage: 12 MILLIGRAM, QWK
     Route: 048
     Dates: start: 20170131, end: 20171013
  6. DEXAMETHASONE. [Suspect]
     Active Substance: DEXAMETHASONE
     Indication: PRODUCT USED FOR UNKNOWN INDICATION
     Dosage: 8 MILLIGRAM, Q4WK
     Route: 041
     Dates: start: 20171104, end: 20190216
  7. DEXAMETHASONE. [Suspect]
     Active Substance: DEXAMETHASONE
     Indication: PRODUCT USED FOR UNKNOWN INDICATION
     Dosage: 12 MILLIGRAM, Q2WK
     Route: 048
     Dates: start: 20171104, end: 20180519
  8. ACICLOVIR [Concomitant]
     Active Substance: ACYCLOVIR
     Indication: PROPHYLAXIS
     Dosage: 200 MG, QD
     Route: 065
     Dates: start: 20160823
  9. ELOTUZUMAB. [Suspect]
     Active Substance: ELOTUZUMAB
     Indication: PRODUCT USED FOR UNKNOWN INDICATION
     Dosage: 10 MILLIGRAM/KILOGRAM, Q4WK
     Route: 041
     Dates: start: 20180825
  10. DEXAMETHASONE. [Suspect]
     Active Substance: DEXAMETHASONE
     Indication: PRODUCT USED FOR UNKNOWN INDICATION
     Dosage: 8 MILLIGRAM, Q2WK
     Route: 041
     Dates: start: 20170328, end: 20171006
  11. LENALIDOMIDE [Suspect]
     Active Substance: LENALIDOMIDE
     Indication: PLASMA CELL MYELOMA
     Dosage: 5 MG, QD
     Route: 048
     Dates: start: 20170131, end: 20190219

REACTIONS (2)
  - Tumour lysis syndrome [Recovered/Resolved]
  - Pneumonia [Recovered/Resolved]

NARRATIVE: CASE EVENT DATE: 20170201
